FAERS Safety Report 13936832 (Version 1)
Quarter: 2017Q3

REPORT INFORMATION
  Report Type: Spontaneous
  Country: AT (occurrence: AT)
  Receive Date: 20170905
  Receipt Date: 20170905
  Transmission Date: 20171127
  Serious: Yes (Hospitalization)
  Sender: FDA-Public Use
  Company Number: AT-TEVA-800696ISR

PATIENT
  Age: 61 Year
  Sex: Male

DRUGS (15)
  1. SULTANOL - DOSIERAEROSOL [Concomitant]
     Indication: ASTHMA
     Dates: start: 2015
  2. FOSTER NEXTHALER 100 MIKROGRAMM/6 MIKROGRAMM PRO DOSIS PULVER ZUR INHA [Concomitant]
     Indication: ASTHMA
     Dates: start: 2015
  3. CERTICAN [Suspect]
     Active Substance: EVEROLIMUS
     Indication: HEART TRANSPLANT
     Dosage: 2 DOSAGE FORMS DAILY; 1-0-1 (ONE IN THE MORNING/EVENING)
     Dates: start: 201705
  4. BONVIVA 3MG INJEKTIONSL?SUNG [Concomitant]
     Indication: OSTEOPOROSIS
     Dates: start: 2015
  5. MAGNESIUM VERLA [Concomitant]
     Active Substance: MAGNESIUM
     Indication: ASTHMA
     Dosage: 2 DOSAGE FORMS DAILY; 1-0-1 (1 IN THE MORNING/EVENING)
     Dates: start: 2015
  6. CINQAERO 10MG/ML KONZENTRAT ZUR HERSTELLUNG EINER INF.LSG [Suspect]
     Active Substance: RESLIZUMAB
     Indication: ASTHMA
     Dates: start: 201701
  7. PANTOLOC 40MG - FILMTABLETTEN [Concomitant]
     Indication: REFLUX GASTRITIS
     Dosage: 1 DOSAGE FORMS DAILY; 1-0-0 (1 IN THE MORNING)
     Dates: start: 2015
  8. SANDIMMUN NEORAL 50MG - KAPSELN [Concomitant]
     Indication: HEART TRANSPLANT
     Dates: start: 2015
  9. MYFORTIC [Suspect]
     Active Substance: MYCOPHENOLATE SODIUM
     Dosage: 1080 MILLIGRAM DAILY; 1-1-1 (1 IN THE MORNING/EVENING, 1 AT NOON)
     Dates: end: 201705
  10. APREDNISLON [Concomitant]
     Active Substance: PREDNISOLONE
     Indication: HEART TRANSPLANT
     Dosage: CHANGING DOSAGE
     Dates: start: 2015
  11. SORTIS 20 MG FILMTABLETTEN [Concomitant]
     Indication: HYPERCHOLESTEROLAEMIA
     Dosage: 1 DOSAGE FORMS DAILY; 0-0-1 (1 IN THE EVENING)
     Dates: start: 2015
  12. VITAMINS WITH MINERALS [Concomitant]
     Active Substance: MINERALS\VITAMINS
     Indication: OSTEOPOROSIS
     Dosage: 1 DOSAGE FORMS DAILY; 1-0-0 (1 IN THE MORNING)
  13. CONCOR COR 2,5 MG FILMTABLETTEN [Concomitant]
     Indication: HYPERTENSION
     Dosage: 1 DOSAGE FORMS DAILY; 1-0-0 (1 IN THE MORNING)
     Dates: start: 2015
  14. SPIRIVA RESPIMAT 2,5 MIKROGRAMM - L?SUNG ZUR INHAL. [Concomitant]
     Indication: ASTHMA
     Dosage: 2 DOSAGE FORMS DAILY; 2-0-0 (2 IN THE MORNING)
     Dates: start: 2015
  15. THROMBO ASS [Concomitant]
     Active Substance: ASPIRIN
     Dosage: 1-0-0 (1 IN THE MORNING)
     Dates: end: 201705

REACTIONS (2)
  - Colitis ulcerative [Unknown]
  - Colitis [Unknown]

NARRATIVE: CASE EVENT DATE: 2017
